FAERS Safety Report 6582512-8 (Version None)
Quarter: 2010Q1

REPORT INFORMATION
  Report Type: 
  Country: None (occurrence: None)
  Receive Date: 20100216
  Receipt Date: 20100205
  Transmission Date: 20100710
  Serious: Yes (Hospitalization)
  Sender: FDA-Public Use
  Company Number: US-JNJFOC-20100205247

PATIENT
  Sex: Male
  Weight: 45.1 kg

DRUGS (5)
  1. INFLIXIMAB [Suspect]
     Indication: CROHN'S DISEASE
     Route: 042
  2. AZATHIOPRINE [Concomitant]
  3. WELLBUTRIN [Concomitant]
  4. DOXYCYCLINE [Concomitant]
  5. INVEGA [Concomitant]

REACTIONS (1)
  - DEPRESSION [None]
